FAERS Safety Report 5050743-4 (Version None)
Quarter: 2006Q3

REPORT INFORMATION
  Report Type: 
  Country: None (occurrence: None)
  Receive Date: 20060707
  Receipt Date: 20060621
  Transmission Date: 20061208
  Serious: Yes (Death, Hospitalization)
  Sender: FDA-Public Use
  Company Number: 2006BI009310

PATIENT
  Age: 39 Year
  Sex: Female
  Weight: 56 kg

DRUGS (1)
  1. AVONEX [Suspect]
     Indication: MULTIPLE SCLEROSIS
     Dosage: 30 UG; QW; IM
     Route: 030

REACTIONS (4)
  - CEREBRAL INFARCTION [None]
  - COGNITIVE DISORDER [None]
  - COMA [None]
  - GAIT DISTURBANCE [None]
